FAERS Safety Report 21363649 (Version 2)
Quarter: 2022Q3

REPORT INFORMATION
  Report Type: Spontaneous
  Country: US (occurrence: US)
  Receive Date: 20220922
  Receipt Date: 20220922
  Transmission Date: 20221027
  Serious: No
  Sender: FDA-Public Use
  Company Number: US-PFIZER INC-2020405310

PATIENT
  Age: 1 Year
  Sex: Male

DRUGS (3)
  1. GENOTROPIN [Suspect]
     Active Substance: SOMATROPIN
     Dosage: 0.5 MG, DAILY
  2. GENOTROPIN [Suspect]
     Active Substance: SOMATROPIN
     Dosage: 0.6 MG, ALTERNATE DAY (ALTERNATING 0.6MG AND 0.8MG DAILY)
     Dates: start: 2020
  3. GENOTROPIN [Suspect]
     Active Substance: SOMATROPIN
     Dosage: 0.8 MG, ALTERNATE DAY (ALTERNATING 0.6MG AND 0.8MG DAILY)
     Dates: start: 2020

REACTIONS (3)
  - Product prescribing error [Unknown]
  - Device use issue [Unknown]
  - Drug dose omission by device [Unknown]
